FAERS Safety Report 8309685-0 (Version None)
Quarter: 2012Q2

REPORT INFORMATION
  Report Type: 
  Country: None (occurrence: None)
  Receive Date: 20120425
  Receipt Date: 20120417
  Transmission Date: 20120825
  Serious: Yes (Death, Hospitalization, Other)
  Sender: FDA-Public Use
  Company Number: BR-GENZYME-CERZ-1002474

PATIENT
  Sex: Male
  Weight: 19 kg

DRUGS (1)
  1. CEREZYME [Suspect]
     Indication: GAUCHER'S DISEASE
     Dosage: 14 VIALS, Q4W
     Route: 042
     Dates: start: 20110420, end: 20120208

REACTIONS (3)
  - MALNUTRITION [None]
  - RESPIRATORY FAILURE [None]
  - PNEUMONIA [None]
